FAERS Safety Report 21260963 (Version 2)
Quarter: 2022Q3

REPORT INFORMATION
  Report Type: Spontaneous
  Country: AR (occurrence: AR)
  Receive Date: 20220826
  Receipt Date: 20220914
  Transmission Date: 20221027
  Serious: Yes (Other)
  Sender: FDA-Public Use
  Company Number: AR-BIOMARINAP-AR-2022-145157

PATIENT

DRUGS (1)
  1. VIMIZIM [Suspect]
     Active Substance: ELOSULFASE ALFA
     Indication: Product used for unknown indication
     Dosage: UNK, QW
     Route: 042
     Dates: start: 20141030

REACTIONS (9)
  - Spinal cord compression [Not Recovered/Not Resolved]
  - Spinal deformity [Not Recovered/Not Resolved]
  - Foramen magnum stenosis [Not Recovered/Not Resolved]
  - Myelopathy [Not Recovered/Not Resolved]
  - Paraplegia [Not Recovered/Not Resolved]
  - Dysstasia [Not Recovered/Not Resolved]
  - Paraparesis [Not Recovered/Not Resolved]
  - Gait disturbance [Not Recovered/Not Resolved]
  - Pain in extremity [Not Recovered/Not Resolved]

NARRATIVE: CASE EVENT DATE: 20190101
